FAERS Safety Report 5897781-7 (Version None)
Quarter: 2008Q3

REPORT INFORMATION
  Report Type: 
  Country: None (occurrence: None)
  Receive Date: 20080925
  Receipt Date: 20080925
  Transmission Date: 20090109
  Serious: Yes (Life-Threatening)
  Sender: FDA-Public Use
  Company Number: PHEH1995US01999

PATIENT
  Sex: Female
  Weight: 83 kg

DRUGS (8)
  1. SANDIMMUNE [Suspect]
     Route: 048
     Dates: start: 19950815, end: 19950925
  2. ZANTAC 150 [Concomitant]
  3. CYTOXAN [Concomitant]
  4. PREDNISONE [Concomitant]
  5. ASPIRIN [Concomitant]
  6. LASIX [Concomitant]
  7. TYLENOL W/ CODEINE NO. 3 [Concomitant]
  8. MAGNESIUM OXIDE (MAGNESIUM OXIDE) [Concomitant]

REACTIONS (3)
  - DYSPNOEA [None]
  - PHYSICAL DISABILITY [None]
  - TRANSPLANT REJECTION [None]
